FAERS Safety Report 16254058 (Version 2)
Quarter: 2019Q2

REPORT INFORMATION
  Report Type: Report from Study
  Country: GB (occurrence: GB)
  Receive Date: 20190430
  Receipt Date: 20190627
  Transmission Date: 20190711
  Serious: Yes (Other)
  Sender: FDA-Public Use
  Company Number: PHHY2019GB095338

PATIENT
  Age: 67 Year
  Sex: Male

DRUGS (2)
  1. SANDOSTATIN LAR DEPOT [Suspect]
     Active Substance: OCTREOTIDE ACETATE
     Dosage: 30 MG, Q3W (ONCE EVERY 3 WEEKS)
     Route: 030
  2. SANDOSTATIN LAR DEPOT [Suspect]
     Active Substance: OCTREOTIDE ACETATE
     Indication: NEUROENDOCRINE TUMOUR
     Dosage: 30 MG, Q3W
     Route: 030
     Dates: start: 20171114

REACTIONS (5)
  - Lower respiratory tract infection [Unknown]
  - Nephrolithiasis [Unknown]
  - Inappropriate schedule of product administration [Unknown]
  - Anaemia [Unknown]
  - Fluid retention [Unknown]

NARRATIVE: CASE EVENT DATE: 20190416
